FAERS Safety Report 19651090 (Version 1)
Quarter: 2021Q3

REPORT INFORMATION
  Report Type: Spontaneous
  Country: CN (occurrence: CN)
  Receive Date: 20210802
  Receipt Date: 20210802
  Transmission Date: 20211014
  Serious: Yes (Life-Threatening, Hospitalization)
  Sender: FDA-Public Use
  Company Number: CN-BAXTER-2021BAX022904

PATIENT
  Age: 49 Year
  Sex: Female
  Weight: 43.5 kg

DRUGS (16)
  1. 0.9% SODIUM CHLORIDE INJECTION [Suspect]
     Active Substance: SODIUM CHLORIDE
     Dosage: 0.9% SODIUM CHLORIDE (UPRIGHT SOFT BAG) + TRASTUZUMAB 320 MG
     Route: 041
     Dates: start: 20210629, end: 20210629
  2. AISU [Suspect]
     Active Substance: DOCETAXEL
     Indication: BREAST CANCER FEMALE
     Dosage: DOCETAXEL + 5% GLUCOSE 250 ML
     Route: 041
     Dates: start: 20210630, end: 20210630
  3. 0.9% SODIUM CHLORIDE INJECTION [Suspect]
     Active Substance: SODIUM CHLORIDE
     Indication: MEDICATION DILUTION
     Dosage: 0.9% SODIUM CHLORIDE + CYCLOPHOSPHAMIDE 0.8 G
     Route: 041
     Dates: start: 20210630, end: 20210630
  4. 0.9% SODIUM CHLORIDE INJECTION [Suspect]
     Active Substance: SODIUM CHLORIDE
     Dosage: DOSE RE?INTRODUCED. 0.9% SODIUM CHLORIDE + PERTUZUMAB
     Route: 041
     Dates: start: 202107
  5. 5% GLUCOSE  INJECTION [Suspect]
     Active Substance: DEXTROSE
     Indication: MEDICATION DILUTION
     Dosage: 5% GLUCOSE (UPRIGHT SOFT BAG) + DOCETAXEL 100 MG
     Route: 041
     Dates: start: 20210630, end: 20210630
  6. AISU [Suspect]
     Active Substance: DOCETAXEL
     Dosage: DOSE RE?INTRODUCED, DOCETAXEL + GLUCOSE
     Route: 041
     Dates: start: 202107
  7. PERJETA [Suspect]
     Active Substance: PERTUZUMAB
     Indication: BREAST CANCER FEMALE
     Dosage: 0.9% SODIUM CHLORIDE (UPRIGHT SOFT BAG) 250ML + PERTUZUMAB
     Route: 041
     Dates: start: 20210630, end: 20210630
  8. HERCEPTIN [Suspect]
     Active Substance: TRASTUZUMAB
     Indication: BREAST CANCER FEMALE
     Dosage: 0.9% SODIUM CHLORIDE (UPRIGHT SOFT BAG) 250ML + TRASTUZUMAB
     Route: 041
     Dates: start: 20210629, end: 20210629
  9. HERCEPTIN [Suspect]
     Active Substance: TRASTUZUMAB
     Dosage: DOSE RE?INTRODUCED, 0.9% SODIUM CHLORIDE (UPRIGHT SOFT BAG) + TRASTUZUMAB
     Route: 041
     Dates: start: 202107
  10. 0.9% SODIUM CHLORIDE INJECTION [Suspect]
     Active Substance: SODIUM CHLORIDE
     Dosage: DOSE RE?INTRODUCED. 0.9% SODIUM CHLORIDE + CYCLOPHOSPHAMIDE
     Route: 041
     Dates: start: 202107
  11. ENDOXAN [Suspect]
     Active Substance: CYCLOPHOSPHAMIDE
     Indication: BREAST CANCER FEMALE
     Dosage: CYCLOPHOSPHAMIDE + 0.9% SODIUM CHLORIDE 40 ML
     Route: 041
     Dates: start: 20210630, end: 20210630
  12. 5% GLUCOSE  INJECTION [Suspect]
     Active Substance: DEXTROSE
     Dosage: DOSE RE?INTRODUCED, 5% GLUCOSE (UPRIGHT SOFT BAG) + DOCETAXEL
     Route: 041
     Dates: start: 202107
  13. ENDOXAN [Suspect]
     Active Substance: CYCLOPHOSPHAMIDE
     Dosage: DOSE RE?INTRODUCED CYCLOPHOSPHAMIDE + 0.9% SODIUM CHLORIDE
     Route: 041
     Dates: start: 202107
  14. 0.9% SODIUM CHLORIDE INJECTION [Suspect]
     Active Substance: SODIUM CHLORIDE
     Dosage: DOSE RE?INTRODUCED. 0.9% SODIUM CHLORIDE + TRASTUZUMAB
     Route: 041
     Dates: start: 202107
  15. PERJETA [Suspect]
     Active Substance: PERTUZUMAB
     Dosage: DOSE RE?INTRODUCED 0.9% SODIUM CHLORIDE (UPRIGHT SOFT BAG) + PERTUZUMAB
     Route: 041
     Dates: start: 202107
  16. 0.9% SODIUM CHLORIDE INJECTION [Suspect]
     Active Substance: SODIUM CHLORIDE
     Dosage: 0.9% SODIUM CHLORIDE (UPRIGHT SOFT BAG) + PERTUZUMAB 0.84 G
     Route: 041
     Dates: start: 20210630, end: 20210630

REACTIONS (1)
  - Myelosuppression [Recovering/Resolving]

NARRATIVE: CASE EVENT DATE: 20210707
